FAERS Safety Report 12865750 (Version 3)
Quarter: 2016Q4

REPORT INFORMATION
  Report Type: Spontaneous
  Country: US (occurrence: US)
  Receive Date: 20161020
  Receipt Date: 20161117
  Transmission Date: 20170207
  Serious: Yes (Other)
  Sender: FDA-Public Use
  Company Number: US-PFIZER INC-2016484801

PATIENT
  Age: 71 Year
  Sex: Male
  Weight: 56 kg

DRUGS (2)
  1. INLYTA [Suspect]
     Active Substance: AXITINIB
     Indication: RENAL CELL CARCINOMA
     Dosage: 5 MG, 2X/DAY
     Route: 048
     Dates: start: 20160806
  2. INLYTA [Suspect]
     Active Substance: AXITINIB
     Dosage: 5 MG, 2X/DAY
     Route: 048
     Dates: start: 20161008, end: 20161106

REACTIONS (4)
  - Blood pressure increased [Not Recovered/Not Resolved]
  - Dysphonia [Unknown]
  - Headache [Not Recovered/Not Resolved]
  - Muscle spasms [Unknown]
